FAERS Safety Report 4619331-5 (Version None)
Quarter: 2005Q2

REPORT INFORMATION
  Report Type: 
  Country: None (occurrence: None)
  Receive Date: 20050321
  Receipt Date: 20040311
  Transmission Date: 20051028
  Serious: Yes (Other)
  Sender: FDA-Public Use
  Company Number: 2004-03-0998

PATIENT
  Sex: Female

DRUGS (3)
  1. PEG-INTRON [Suspect]
     Indication: HEPATITIS C
     Dates: start: 20031209
  2. REBETOL [Suspect]
     Indication: HEPATITIS C
     Dates: start: 20031209
  3. LOPRESSOR [Concomitant]

REACTIONS (11)
  - ANOREXIA [None]
  - ASTHENIA [None]
  - BLOOD PRESSURE DECREASED [None]
  - BONE DISORDER [None]
  - CHROMATURIA [None]
  - DRY MOUTH [None]
  - NAUSEA [None]
  - PALPITATIONS [None]
  - SKIN WRINKLING [None]
  - THROAT IRRITATION [None]
  - WEIGHT DECREASED [None]
